FAERS Safety Report 16211562 (Version 3)
Quarter: 2019Q2

REPORT INFORMATION
  Report Type: Spontaneous
  Country: GR (occurrence: GR)
  Receive Date: 20190418
  Receipt Date: 20190426
  Transmission Date: 20190711
  Serious: Yes (Other)
  Sender: FDA-Public Use
  Company Number: GR-ABBVIE-19K-066-2741943-00

PATIENT
  Age: 38 Year
  Sex: Male

DRUGS (4)
  1. HUMIRA [Suspect]
     Active Substance: ADALIMUMAB
     Route: 058
     Dates: start: 201904, end: 201904
  2. HUMIRA [Suspect]
     Active Substance: ADALIMUMAB
     Route: 058
     Dates: start: 20171122, end: 201802
  3. HUMIRA [Suspect]
     Active Substance: ADALIMUMAB
     Indication: CROHN^S DISEASE
     Route: 058
     Dates: start: 2017, end: 201711
  4. HUMIRA [Suspect]
     Active Substance: ADALIMUMAB
     Route: 058
     Dates: start: 201802, end: 20190406

REACTIONS (20)
  - Myalgia [Unknown]
  - Polyarthritis [Not Recovered/Not Resolved]
  - C-reactive protein increased [Not Recovered/Not Resolved]
  - Frequent bowel movements [Unknown]
  - Flatulence [Not Recovered/Not Resolved]
  - Herpes zoster [Recovered/Resolved]
  - Therapeutic product effect decreased [Unknown]
  - Defaecation urgency [Unknown]
  - Rash pruritic [Unknown]
  - Dermatitis allergic [Recovered/Resolved]
  - Haematocrit decreased [Not Recovered/Not Resolved]
  - Abdominal distension [Unknown]
  - Arthralgia [Unknown]
  - Drug hypersensitivity [Unknown]
  - Purpura [Recovering/Resolving]
  - Rash [Not Recovered/Not Resolved]
  - Diarrhoea [Unknown]
  - Fatigue [Not Recovered/Not Resolved]
  - Blood test abnormal [Recovering/Resolving]
  - Rash pruritic [Recovered/Resolved]

NARRATIVE: CASE EVENT DATE: 201711
